FAERS Safety Report 19751950 (Version 4)
Quarter: 2021Q4

REPORT INFORMATION
  Report Type: Report from Study
  Country: CO (occurrence: CO)
  Receive Date: 20210826
  Receipt Date: 20211112
  Transmission Date: 20220303
  Serious: Yes (Hospitalization, Other)
  Sender: FDA-Public Use
  Company Number: CO-ABBVIE-21K-036-3794397-00

PATIENT
  Sex: Male
  Weight: 50 kg

DRUGS (1)
  1. HUMIRA [Suspect]
     Active Substance: ADALIMUMAB
     Indication: Psoriasis
     Route: 058
     Dates: start: 20200217, end: 20210507

REACTIONS (8)
  - Disorientation [Not Recovered/Not Resolved]
  - Anxiety disorder [Recovered/Resolved]
  - Incoherent [Not Recovered/Not Resolved]
  - Abnormal behaviour [Unknown]
  - Language disorder [Unknown]
  - Hypothyroidism [Not Recovered/Not Resolved]
  - Anxiety disorder [Recovered/Resolved]
  - Psoriasis [Not Recovered/Not Resolved]

NARRATIVE: CASE EVENT DATE: 20200101
